FAERS Safety Report 6035954-3 (Version None)
Quarter: 2009Q1

REPORT INFORMATION
  Report Type: 
  Country: None (occurrence: None)
  Receive Date: 20090113
  Receipt Date: 20081229
  Transmission Date: 20090719
  Serious: Yes (Other)
  Sender: FDA-Public Use
  Company Number: US-BAYER-200910103NA

PATIENT
  Age: 68 Year
  Sex: Male
  Weight: 76 kg

DRUGS (9)
  1. NEXAVAR [Suspect]
     Indication: HEPATIC NEOPLASM MALIGNANT
     Dosage: TOTAL DAILY DOSE: 800 MG  UNIT DOSE: 200 MG
     Route: 048
     Dates: start: 20081223, end: 20081227
  2. BIOSPHERES/CISPLATIN [Suspect]
     Indication: HEPATIC NEOPLASM MALIGNANT
     Dates: start: 20081222
  3. NADOLOL [Concomitant]
     Dosage: TOTAL DAILY DOSE: 40 MG
     Route: 048
  4. AMLODIPINE BESYLATE [Concomitant]
     Dosage: TOTAL DAILY DOSE: 5 MG
     Route: 048
  5. HYDROCHLOROTHIAZIDE [Concomitant]
     Dosage: TOTAL DAILY DOSE: 25 MG
     Route: 048
  6. ASPIRIN [Concomitant]
     Dosage: TOTAL DAILY DOSE: 81 MG
     Route: 048
  7. IBUPROFEN TABLETS [Concomitant]
     Route: 048
  8. LACTULOSE [Concomitant]
  9. FENTANYL CITRATE [Concomitant]
     Route: 061
     Dates: start: 20081223

REACTIONS (1)
  - LIVER FUNCTION TEST ABNORMAL [None]
